FAERS Safety Report 6657061-9 (Version None)
Quarter: 2010Q1

REPORT INFORMATION
  Report Type: 
  Country: None (occurrence: None)
  Receive Date: 20100330
  Receipt Date: 20100318
  Transmission Date: 20100710
  Serious: Yes (Hospitalization)
  Sender: FDA-Public Use
  Company Number: US-JNJFOC-20100204273

PATIENT
  Sex: Male

DRUGS (8)
  1. PREZISTA [Suspect]
     Indication: HIV INFECTION
     Route: 048
  2. INTELENCE [Suspect]
     Indication: HIV INFECTION
     Route: 048
  3. ZOCOR [Interacting]
     Indication: BLOOD CHOLESTEROL INCREASED
     Route: 065
  4. NORVIR [Suspect]
     Indication: HIV INFECTION
     Route: 048
  5. ISENTRESS [Concomitant]
     Indication: HIV INFECTION
     Route: 065
  6. LISINOPRIL [Concomitant]
     Indication: HYPERTENSION
     Route: 065
  7. TOPROL-XL [Concomitant]
     Indication: HYPERTENSION
     Route: 065
  8. LANTUS [Concomitant]
     Indication: DIABETES MELLITUS
     Route: 065

REACTIONS (3)
  - BLOOD POTASSIUM INCREASED [None]
  - DRUG INTERACTION [None]
  - RHABDOMYOLYSIS [None]
